FAERS Safety Report 6444985-0 (Version None)
Quarter: 2009Q4

REPORT INFORMATION
  Report Type: 
  Country: None (occurrence: None)
  Receive Date: 20091118
  Receipt Date: 20091105
  Transmission Date: 20100525
  Serious: No
  Sender: FDA-Public Use
  Company Number: US-B.I. PHARMACEUTICALS,INC./RIDGEFIELD-2009-BP-12919BP

PATIENT
  Sex: Male

DRUGS (3)
  1. FLOMAX [Suspect]
     Indication: POLLAKIURIA
     Dosage: 0.8 MG
     Route: 048
     Dates: start: 20090903
  2. FLOMAX [Suspect]
     Indication: BENIGN PROSTATIC HYPERPLASIA
     Dosage: 0.4 MG
     Route: 048
     Dates: start: 20090901, end: 20090902
  3. METFORMIN HCL [Concomitant]
     Indication: DIABETES MELLITUS

REACTIONS (5)
  - ABDOMINAL PAIN [None]
  - BLOOD URINE PRESENT [None]
  - CHROMATURIA [None]
  - DYSURIA [None]
  - URINE FLOW DECREASED [None]
